FAERS Safety Report 12106637 (Version 1)
Quarter: 2016Q1

REPORT INFORMATION
  Report Type: Spontaneous
  Country: US (occurrence: US)
  Receive Date: 20160223
  Receipt Date: 20160223
  Transmission Date: 20160526
  Serious: No
  Sender: FDA-Public Use
  Company Number: US-BRACCO-011659

PATIENT

DRUGS (3)
  1. ISOVUE 300 [Suspect]
     Active Substance: IOPAMIDOL
     Indication: DIAGNOSTIC PROCEDURE
     Route: 042
     Dates: start: 20150104, end: 20150104
  2. ISOVUE 300 [Suspect]
     Active Substance: IOPAMIDOL
     Indication: DIAGNOSTIC PROCEDURE
     Route: 042
     Dates: start: 20150105, end: 20150105
  3. ISOVUE 300 [Suspect]
     Active Substance: IOPAMIDOL
     Indication: DIAGNOSTIC PROCEDURE
     Route: 042
     Dates: start: 20150103, end: 20150103

REACTIONS (2)
  - Product physical issue [Recovered/Resolved]
  - No adverse event [Recovered/Resolved]

NARRATIVE: CASE EVENT DATE: 201501
